FAERS Safety Report 10367673 (Version 1)
Quarter: 2014Q3

REPORT INFORMATION
  Report Type: Spontaneous
  Country: US (occurrence: US)
  Receive Date: 20140807
  Receipt Date: 20140807
  Transmission Date: 20150326
  Serious: No
  Sender: FDA-Public Use
  Company Number: US-TARO-2014P1000389

PATIENT
  Age: 22 Year
  Sex: Male
  Weight: 61.24 kg

DRUGS (1)
  1. FLUOCINONIDE OINTMENT USP 0.05% [Suspect]
     Active Substance: FLUOCINONIDE
     Indication: DRY SKIN
     Dosage: BID
     Route: 061
     Dates: start: 20130419, end: 20130501

REACTIONS (3)
  - Drug ineffective [Recovered/Resolved]
  - Wound [Unknown]
  - Application site dryness [Recovered/Resolved]

NARRATIVE: CASE EVENT DATE: 201304
